FAERS Safety Report 4604528-0 (Version None)
Quarter: 2005Q2

REPORT INFORMATION
  Report Type: 
  Country: None (occurrence: None)
  Receive Date: 20050223
  Receipt Date: 20041215
  Transmission Date: 20051028
  Serious: No
  Sender: FDA-Public Use
  Company Number: PHEH2004US13385

PATIENT
  Age: 2 Year
  Sex: Male

DRUGS (1)
  1. ZELNORM [Suspect]
     Dosage: ORAL
     Route: 048

REACTIONS (1)
  - ACCIDENTAL EXPOSURE [None]
